FAERS Safety Report 13388971 (Version 1)
Quarter: 2017Q1

REPORT INFORMATION
  Report Type: Spontaneous
  Country: US (occurrence: US)
  Receive Date: 20170330
  Receipt Date: 20170330
  Transmission Date: 20170429
  Serious: No
  Sender: FDA-Public Use
  Company Number: US-BAYER-2017-060556

PATIENT
  Age: 74 Year
  Sex: Female
  Weight: 57 kg

DRUGS (1)
  1. MIRALAX [Suspect]
     Active Substance: POLYETHYLENE GLYCOL 3350
     Indication: IRRITABLE BOWEL SYNDROME
     Dosage: 1/2 CAPFUL OR 1 CAPFUL IN LIQUID DOSE
     Route: 048
     Dates: start: 201507, end: 20170329

REACTIONS (3)
  - Product use issue [Unknown]
  - Off label use [Unknown]
  - Product solubility abnormal [None]

NARRATIVE: CASE EVENT DATE: 201507
